FAERS Safety Report 15556935 (Version 1)
Quarter: 2018Q4

REPORT INFORMATION
  Report Type: Spontaneous
  Country: KR (occurrence: KR)
  Receive Date: 20181026
  Receipt Date: 20181026
  Transmission Date: 20190205
  Serious: Yes (Other)
  Sender: FDA-Public Use
  Company Number: KR-ASTRAZENECA-2018SF39510

PATIENT
  Age: 54 Year
  Sex: Male

DRUGS (7)
  1. ROSUVASTATIN. [Suspect]
     Active Substance: ROSUVASTATIN
     Route: 048
     Dates: start: 20121209
  2. ASPIRIN. [Concomitant]
     Active Substance: ASPIRIN
  3. BRILINTA [Suspect]
     Active Substance: TICAGRELOR
     Route: 048
  4. TRIMETAZIDINE [Concomitant]
     Active Substance: TRIMETAZIDINE
  5. PRASUGREL. [Concomitant]
     Active Substance: PRASUGREL
  6. CLOPIDOGREL [Concomitant]
     Active Substance: CLOPIDOGREL BISULFATE
  7. CAPTOPRIL. [Concomitant]
     Active Substance: CAPTOPRIL

REACTIONS (8)
  - Gastric ulcer haemorrhage [Unknown]
  - Dyspnoea exertional [Unknown]
  - Chest discomfort [Unknown]
  - Ejection fraction decreased [Unknown]
  - Coronary artery disease [Unknown]
  - Shock [Unknown]
  - Acute myocardial infarction [Unknown]
  - Chest pain [Unknown]

NARRATIVE: CASE EVENT DATE: 20121209
